FAERS Safety Report 20871197 (Version 6)
Quarter: 2023Q1

REPORT INFORMATION
  Report Type: Spontaneous
  Country: JP (occurrence: JP)
  Receive Date: 20220525
  Receipt Date: 20230217
  Transmission Date: 20230417
  Serious: Yes (Hospitalization, Other)
  Sender: FDA-Public Use
  Company Number: JP-CHUGAI-2022014092

PATIENT
  Age: 67 Year
  Sex: Female
  Weight: 39.9 kg

DRUGS (4)
  1. GAZYVA [Suspect]
     Active Substance: OBINUTUZUMAB
     Indication: Follicular lymphoma
     Dosage: 1000MG/DAY, MOST RECENT DOSE ON 03/FEB/2022
     Route: 041
     Dates: start: 20211018
  2. BENDAMUSTINE HYDROCHLORIDE [Suspect]
     Active Substance: BENDAMUSTINE HYDROCHLORIDE
     Indication: Follicular lymphoma
     Dosage: MOST RECENT DOSE 04/FEB/2022
     Route: 041
     Dates: start: 20211012
  3. SULFAMETHOXAZOLE\TRIMETHOPRIM [Concomitant]
     Active Substance: SULFAMETHOXAZOLE\TRIMETHOPRIM
     Indication: Prophylaxis
     Dosage: 1 DOSAGE FORM, TIW
     Route: 048
     Dates: start: 20211012
  4. RABEPRAZOLE SODIUM [Concomitant]
     Active Substance: RABEPRAZOLE SODIUM
     Indication: Prophylaxis
     Dosage: 10 MILLIGRAM, QD
     Route: 048
     Dates: start: 20211012

REACTIONS (2)
  - COVID-19 [Recovering/Resolving]
  - Organising pneumonia [Unknown]

NARRATIVE: CASE EVENT DATE: 20220226
